FAERS Safety Report 5928023-1 (Version None)
Quarter: 2008Q4

REPORT INFORMATION
  Report Type: 
  Country: None (occurrence: None)
  Receive Date: 20081022
  Receipt Date: 20081022
  Transmission Date: 20090506
  Serious: Yes (Hospitalization)
  Sender: FDA-Public Use
  Company Number: None

PATIENT
  Sex: Female
  Weight: 100.33 kg

DRUGS (2)
  1. CARBOPLATIN [Suspect]
     Dosage: 350 MG
  2. TAXOL [Suspect]
     Dosage: 270 MG

REACTIONS (8)
  - ASTHENIA [None]
  - DEHYDRATION [None]
  - DIZZINESS [None]
  - HYPOKALAEMIA [None]
  - HYPOTENSION [None]
  - HYPOVOLAEMIA [None]
  - NAUSEA [None]
  - RENAL FAILURE ACUTE [None]
